FAERS Safety Report 14672648 (Version 4)
Quarter: 2018Q2

REPORT INFORMATION
  Report Type: Spontaneous
  Country: PR (occurrence: PR)
  Receive Date: 20180323
  Receipt Date: 20180621
  Transmission Date: 20180711
  Serious: No
  Sender: FDA-Public Use
  Company Number: PR-PFIZER INC-2018120564

PATIENT
  Age: 48 Year
  Sex: Female
  Weight: 100 kg

DRUGS (4)
  1. IBRANCE [Suspect]
     Active Substance: PALBOCICLIB
     Dosage: 125 MG, DAILY
     Route: 048
     Dates: start: 20180315
  2. IBRANCE [Suspect]
     Active Substance: PALBOCICLIB
     Indication: BREAST CANCER FEMALE
     Dosage: 125 MG, DAILY
     Route: 048
     Dates: start: 20180315
  3. IBRANCE [Suspect]
     Active Substance: PALBOCICLIB
     Dosage: 125 MG, DAILY
     Route: 048
     Dates: start: 20180315
  4. IBRANCE [Suspect]
     Active Substance: PALBOCICLIB
     Dosage: 125 MG, CYCLIC (DAILY X 21 DAYS/ 7 OFF)
     Route: 048
     Dates: start: 20180316

REACTIONS (10)
  - Rhinitis allergic [Unknown]
  - Bone pain [Unknown]
  - Rash pruritic [Unknown]
  - Expired product administered [Unknown]
  - Musculoskeletal chest pain [Unknown]
  - Urine odour abnormal [Unknown]
  - Rash erythematous [Unknown]
  - White blood cell count decreased [Unknown]
  - Chromaturia [Unknown]
  - Vaginal discharge [Unknown]

NARRATIVE: CASE EVENT DATE: 2018
